FAERS Safety Report 4569679-8 (Version None)
Quarter: 2005Q1

REPORT INFORMATION
  Report Type: 
  Country: None (occurrence: None)
  Receive Date: 20050201
  Receipt Date: 20050125
  Transmission Date: 20050727
  Serious: Yes (Death, Hospitalization)
  Sender: FDA-Public Use
  Company Number: 1997002030-FJ

PATIENT
  Age: 3 Year
  Sex: Male
  Weight: 12 kg

DRUGS (3)
  1. PROGRAF [Suspect]
     Indication: SMALL INTESTINE TRANSPLANT
     Dosage: ORAL
     Route: 048
     Dates: start: 19960517, end: 19970827
  2. METHYLPREDNISOLONE [Suspect]
     Indication: SMALL INTESTINE TRANSPLANT
     Dosage: 2 MG/KG UNKNOWN/D INTRAVENOUS
     Route: 042
     Dates: start: 19960517, end: 19970912
  3. AZATHIOPRINE [Suspect]
     Indication: SMALL INTESTINE TRANSPLANT
     Dosage: 2 MG/KG ORAL
     Route: 048
     Dates: start: 19960517, end: 19970823

REACTIONS (10)
  - BRAIN OEDEMA [None]
  - BRAIN STEM SYNDROME [None]
  - CYTOMEGALOVIRUS INFECTION [None]
  - EPSTEIN-BARR VIRUS INFECTION [None]
  - ESCHERICHIA BACTERAEMIA [None]
  - INTESTINE TRANSPLANT REJECTION [None]
  - PNEUMOCYSTIS JIROVECI PNEUMONIA [None]
  - PNEUMONIA ASPERGILLUS [None]
  - RESPIRATORY FAILURE [None]
  - SUBDURAL HAEMORRHAGE [None]
